FAERS Safety Report 6713593-6 (Version None)
Quarter: 2010Q2

REPORT INFORMATION
  Report Type: 
  Country: None (occurrence: None)
  Receive Date: 20100503
  Receipt Date: 20100422
  Transmission Date: 20101027
  Serious: Yes (Hospitalization)
  Sender: FDA-Public Use
  Company Number: 1000013409

PATIENT
  Age: 49 Year
  Sex: Female

DRUGS (4)
  1. MILNACIPRAN (MILNACIPRAN HYDROCHLORIDE) (TABLETS) [Suspect]
     Indication: DEPRESSION
     Dosage: 50 MG (50MG, 1 IN 1D) ORAL, 30 MG (30MG, 1 IN 1D) ORAL
     Route: 048
     Dates: start: 20080920, end: 20100331
  2. MILNACIPRAN (MILNACIPRAN HYDROCHLORIDE) (TABLETS) [Suspect]
     Indication: DEPRESSION
     Dosage: 50 MG (50MG, 1 IN 1D) ORAL, 30 MG (30MG, 1 IN 1D) ORAL
     Route: 048
     Dates: start: 20100401, end: 20100415
  3. L-CYSTEINE ETHYL ESTER, HYDROCHLORIDE [Concomitant]
  4. ZOPICLONE [Concomitant]

REACTIONS (4)
  - ABDOMINAL PAIN [None]
  - CONSTIPATION [None]
  - LOSS OF CONSCIOUSNESS [None]
  - SHOCK [None]
